FAERS Safety Report 8334962-7 (Version None)
Quarter: 2012Q2

REPORT INFORMATION
  Report Type: 
  Country: None (occurrence: None)
  Receive Date: 20120503
  Receipt Date: 20100329
  Transmission Date: 20120825
  Serious: No
  Sender: FDA-Public Use
  Company Number: US-TEVA-2010001500

PATIENT
  Sex: Male
  Weight: 108.96 kg

DRUGS (3)
  1. AZOR [Concomitant]
     Indication: HYPERTENSION
     Dosage: 5 MILLIGRAM;
     Dates: start: 20090101
  2. NUVIGIL [Suspect]
     Indication: SLEEP APNOEA SYNDROME
     Dosage: 250 MILLIGRAM;
     Route: 048
     Dates: start: 20100301, end: 20100307
  3. PRISTIQ [Concomitant]
     Indication: DEPRESSION
     Dates: start: 20090801

REACTIONS (2)
  - INSOMNIA [None]
  - DRUG INEFFECTIVE [None]
